FAERS Safety Report 8658746 (Version 3)
Quarter: 2012Q4

REPORT INFORMATION
  Report Type: 
  Country: US (occurrence: US)
  Receive Date: 20120710
  Receipt Date: 20121016
  Transmission Date: 20130627
  Serious: Yes (Life-Threatening, Other)
  Sender: FDA-Public Use
  Company Number: US-ACTELION-A-US2012-68157

PATIENT
  Age: 71 Year
  Sex: Female

DRUGS (19)
  1. TRACLEER [Suspect]
     Indication: PULMONARY ARTERIAL HYPERTENSION
     Dosage: UNK
     Route: 048
     Dates: start: 20040114, end: 20120711
  2. LOVENOX [Concomitant]
  3. DIGOXIN [Concomitant]
  4. FUROSEMIDE [Concomitant]
  5. JANUVIA [Concomitant]
  6. ACTOS [Concomitant]
  7. STARALGIN [Concomitant]
  8. INSULIN [Concomitant]
  9. TRICOR [Concomitant]
  10. PRAVACHOL [Concomitant]
  11. ADCIRCA [Concomitant]
  12. CELEXA [Concomitant]
  13. IRON [Concomitant]
  14. VITAMIN D [Concomitant]
  15. PANTOPRAZOLE [Concomitant]
  16. VICODIN [Concomitant]
  17. ZOLPIDEM [Concomitant]
  18. LORAZEPAM [Concomitant]
  19. ONDANSETRON [Concomitant]

REACTIONS (5)
  - Hepatic cancer [Not Recovered/Not Resolved]
  - Cholangiocarcinoma [Not Recovered/Not Resolved]
  - Aspartate aminotransferase increased [Not Recovered/Not Resolved]
  - Blood alkaline phosphatase increased [Not Recovered/Not Resolved]
  - Blood bilirubin increased [Not Recovered/Not Resolved]
